FAERS Safety Report 9344628 (Version 1)
Quarter: 2013Q2

REPORT INFORMATION
  Report Type: Report from Study
  Country: US (occurrence: US)
  Receive Date: 20130612
  Receipt Date: 20130612
  Transmission Date: 20140414
  Serious: Yes (Hospitalization)
  Sender: FDA-Public Use
  Company Number: US-ACTELION-A-US2011-47815

PATIENT
  Age: 80 Year
  Sex: Female

DRUGS (3)
  1. VENTAVIS [Suspect]
     Indication: PULMONARY ARTERIAL HYPERTENSION
     Dosage: 20 UG, UNK
     Route: 055
     Dates: start: 20110308
  2. REVATIO [Concomitant]
  3. ADCIRCA [Concomitant]

REACTIONS (2)
  - Cellulitis [Unknown]
  - Oedema peripheral [Unknown]
